FAERS Safety Report 18566381 (Version 3)
Quarter: 2021Q3

REPORT INFORMATION
  Report Type: Spontaneous
  Country: FR (occurrence: FR)
  Receive Date: 20201201
  Receipt Date: 20210803
  Transmission Date: 20211014
  Serious: Yes (Hospitalization)
  Sender: FDA-Public Use
  Company Number: FR-MYLANLABS-2020M1097431

PATIENT
  Age: 56 Year
  Sex: Male
  Weight: 90 kg

DRUGS (11)
  1. MARINOL                            /00003301/ [Suspect]
     Active Substance: ALLOPURINOL
     Indication: NEURALGIA
     Dosage: 2.5 MILLIGRAM, QD
     Route: 048
     Dates: start: 20200717, end: 20201002
  2. BISOPROLOL [Interacting]
     Active Substance: BISOPROLOL
     Indication: PRODUCT USED FOR UNKNOWN INDICATION
     Dosage: 5 MILLIGRAM, QD
     Route: 048
  3. LANSOPRAZOLE. [Suspect]
     Active Substance: LANSOPRAZOLE
     Indication: HIATUS HERNIA
     Dosage: 30 MILLIGRAM, QD
     Route: 048
  4. ATARAX [Interacting]
     Active Substance: HYDROXYZINE HYDROCHLORIDE
     Indication: STRESS
     Dosage: 25 MILLIGRAM, QD
     Route: 048
  5. BILASKA [Interacting]
     Active Substance: BILASTINE
     Indication: HYPERSENSITIVITY
     Dosage: 20 MILLIGRAM, QD
     Route: 048
  6. KETODERM                           /00532501/ [Concomitant]
     Active Substance: KETOCONAZOLE
     Indication: CANDIDA INFECTION
     Dosage: UNK
     Route: 003
  7. ALLERGODIL [Concomitant]
     Active Substance: AZELASTINE
     Dosage: UNK
     Route: 047
  8. MIANSERIN [Interacting]
     Active Substance: MIANSERIN
     Indication: PRODUCT USED FOR UNKNOWN INDICATION
     Dosage: UNK
     Route: 048
  9. TRIFLUCAN [Interacting]
     Active Substance: FLUCONAZOLE
     Indication: OESOPHAGEAL CANDIDIASIS
     Dosage: 100 MILLIGRAM, QD
     Route: 048
     Dates: start: 202009
  10. ALLERGODIL [Concomitant]
     Active Substance: AZELASTINE
     Indication: HYPERSENSITIVITY
     Dosage: UNK
     Route: 047
  11. ALLERGODIL [Concomitant]
     Active Substance: AZELASTINE
     Dosage: UNK
     Route: 047

REACTIONS (7)
  - Vertigo [Recovered/Resolved]
  - Paraesthesia [Recovered/Resolved]
  - Condition aggravated [Recovered/Resolved]
  - Paraesthesia oral [Recovered/Resolved]
  - Off label use [Not Recovered/Not Resolved]
  - Asthenia [Recovered/Resolved]
  - Drug interaction [Recovered/Resolved]

NARRATIVE: CASE EVENT DATE: 20200929
